FAERS Safety Report 23003929 (Version 2)
Quarter: 2023Q4

REPORT INFORMATION
  Report Type: Spontaneous
  Country: TR (occurrence: TR)
  Receive Date: 20230928
  Receipt Date: 20231211
  Transmission Date: 20240110
  Serious: Yes (Other)
  Sender: FDA-Public Use
  Company Number: TR-002147023-NVSC2023TR205245

PATIENT
  Age: 43 Year
  Sex: Male

DRUGS (1)
  1. SECUKINUMAB [Suspect]
     Active Substance: SECUKINUMAB
     Indication: Hidradenitis
     Dosage: SIX DOSES
     Route: 065

REACTIONS (3)
  - Pyoderma gangrenosum [Recovered/Resolved]
  - Behcet^s syndrome [Recovered/Resolved]
  - Paradoxical drug reaction [Recovered/Resolved]
